FAERS Safety Report 5028557-0 (Version None)
Quarter: 2006Q2

REPORT INFORMATION
  Report Type: 
  Country: None (occurrence: None)
  Receive Date: 20060616
  Receipt Date: 20060616
  Transmission Date: 20061013
  Serious: Yes (Life-Threatening, Hospitalization)
  Sender: FDA-Public Use
  Company Number: None

PATIENT
  Age: 78 Year
  Sex: Male

DRUGS (2)
  1. VELCADE [Suspect]
     Indication: MANTLE CELL LYMPHOMA
     Dosage: 1.3 MG/M2  IV  THERAPY DATES: DAY 1 + 4 OF 21 DAY CYCLE
     Route: 042
  2. R-CHOP [Suspect]
     Indication: MANTLE CELL LYMPHOMA
     Dosage: DAY 1 OF 21 DAY CYCLE

REACTIONS (4)
  - CARDIAC FAILURE [None]
  - FLUID OVERLOAD [None]
  - PULMONARY OEDEMA [None]
  - RESPIRATORY DISTRESS [None]
